FAERS Safety Report 11062095 (Version 1)
Quarter: 2015Q2

REPORT INFORMATION
  Report Type: Spontaneous
  Country: AT (occurrence: AT)
  Receive Date: 20150424
  Receipt Date: 20150424
  Transmission Date: 20150821
  Serious: Yes (Hospitalization)
  Sender: FDA-Public Use
  Company Number: AT-JNJFOC-20150315789

PATIENT
  Age: 73 Year
  Sex: Male
  Weight: 82 kg

DRUGS (8)
  1. LYRICA [Concomitant]
     Active Substance: PREGABALIN
     Indication: DIABETES MELLITUS
     Dosage: TOTAL DAILY DOSE IS 75 (UNITS UNSPECIFIED)
     Route: 065
  2. HYPREN PLUS [Concomitant]
     Dosage: TOTAL DAILY DOSE OF 5/25
     Route: 065
  3. MIRTABENE [Concomitant]
     Active Substance: MIRTAZAPINE
     Indication: DEPRESSION
     Route: 065
  4. PSYCHOPAX [Concomitant]
     Active Substance: DIAZEPAM
     Indication: DEPRESSION
     Dosage: AS NEEDED
     Route: 065
  5. LYRICA [Concomitant]
     Active Substance: PREGABALIN
     Indication: POLYNEUROPATHY
     Dosage: TOTAL DAILY DOSE IS 75 (UNITS UNSPECIFIED)
     Route: 065
  6. NOVOMIX 30 [Concomitant]
     Active Substance: INSULIN ASPART
     Indication: DIABETES MELLITUS
     Route: 065
  7. REMICADE [Suspect]
     Active Substance: INFLIXIMAB
     Indication: ANKYLOSING SPONDYLITIS
     Route: 042
     Dates: start: 201503
  8. VITAMINS WITH MINERALS [Concomitant]
     Active Substance: MINERALS\VITAMINS
     Route: 065

REACTIONS (12)
  - Pruritus [Recovered/Resolved]
  - Dyspnoea [Recovered/Resolved]
  - Infusion related reaction [Recovered/Resolved]
  - Rash [Recovered/Resolved]
  - Headache [Recovered/Resolved]
  - Bradycardia [Recovered/Resolved]
  - Tachycardia [Recovered/Resolved]
  - Hypertension [Recovered/Resolved]
  - Hypotension [Recovered/Resolved]
  - Urticaria [Recovered/Resolved]
  - Hypersensitivity [Recovered/Resolved]
  - Palpitations [Recovered/Resolved]

NARRATIVE: CASE EVENT DATE: 201503
